FAERS Safety Report 16412744 (Version 1)
Quarter: 2019Q2

REPORT INFORMATION
  Report Type: Spontaneous
  Country: BR (occurrence: BR)
  Receive Date: 20190611
  Receipt Date: 20190611
  Transmission Date: 20190711
  Serious: Yes (Other)
  Sender: FDA-Public Use
  Company Number: BR-ABBVIE-19P-020-2667146-00

PATIENT
  Sex: Female
  Weight: 16.2 kg

DRUGS (3)
  1. DEPAKENE [Suspect]
     Active Substance: VALPROIC ACID
     Indication: EPILEPSY
     Dosage: FREQUENCY: MORNING/NIGHT; START DATE: SINCE PATIENT WAS 6 MONTHS OLD
     Route: 048
     Dates: start: 2016
  2. FRISIUM [Concomitant]
     Active Substance: CLOBAZAM
     Indication: EPILEPSY
     Dosage: 0.5 IN MORNING,0.5 IN AFTERNOON,1 AT NIGHT,START DATE:SINCE PATIENT WAS 6MONTHS
     Route: 048
     Dates: start: 2016
  3. TOPIRAMATE. [Concomitant]
     Active Substance: TOPIRAMATE
     Indication: EPILEPSY
     Dosage: DAILY DOSE 2 TABLETS, FREQUENCY: MORNING/NIGHT
     Route: 048
     Dates: start: 201712

REACTIONS (3)
  - Product use issue [Unknown]
  - Wrong technique in product usage process [Unknown]
  - Pneumonia [Recovered/Resolved]
